FAERS Safety Report 4847129-1 (Version None)
Quarter: 2005Q4

REPORT INFORMATION
  Report Type: 
  Country: None (occurrence: None)
  Receive Date: 20051205
  Receipt Date: 20051122
  Transmission Date: 20060501
  Serious: Yes (Other)
  Sender: FDA-Public Use
  Company Number: 2005160070

PATIENT
  Sex: Male
  Weight: 68.0396 kg

DRUGS (2)
  1. BEXTRA [Suspect]
     Indication: ILL-DEFINED DISORDER
  2. ALL OTHER THERAPEUTIC PRODUCTS (ALL OTHER THERAPEUTIC PRODUCTS) [Concomitant]

REACTIONS (6)
  - CARDIAC OPERATION [None]
  - CORONARY ARTERY OCCLUSION [None]
  - HYPERTENSION [None]
  - MEMORY IMPAIRMENT [None]
  - RENAL DISORDER [None]
  - URINARY INCONTINENCE [None]
